FAERS Safety Report 4334365-6 (Version None)
Quarter: 2004Q1

REPORT INFORMATION
  Report Type: 
  Country: None (occurrence: None)
  Receive Date: 20040329
  Receipt Date: 20031210
  Transmission Date: 20041129
  Serious: No
  Sender: FDA-Public Use
  Company Number: 03P-163-0244618-00

PATIENT
  Age: 56 Year
  Sex: Female
  Weight: 127.0072 kg

DRUGS (8)
  1. HUMIRA [Suspect]
     Indication: RHEUMATOID ARTHRITIS
     Dosage: 40 MG, 1 IN 1 WK, SUBCUTANEOUS
     Route: 058
     Dates: start: 20031001, end: 20031101
  2. HUMIRA [Suspect]
     Indication: RHEUMATOID ARTHRITIS
     Dosage: 40 MG, 1 IN 1 WK, SUBCUTANEOUS
     Route: 058
     Dates: start: 20031101
  3. PREDNISONE [Concomitant]
  4. ATORVASTATIN [Concomitant]
  5. SERTRALINE HYDROCHLORIDE [Concomitant]
  6. TOLTERODINE TARTRATE [Concomitant]
  7. OMEPRAZOLE [Concomitant]
  8. FOLIC ACID [Concomitant]

REACTIONS (3)
  - INJECTION SITE BURNING [None]
  - SINUSITIS [None]
  - STOMATITIS [None]
